FAERS Safety Report 4376564-3 (Version None)
Quarter: 2004Q2

REPORT INFORMATION
  Report Type: 
  Country: None (occurrence: None)
  Receive Date: 20040614
  Receipt Date: 20040602
  Transmission Date: 20050107
  Serious: Yes (Death)
  Sender: FDA-Public Use
  Company Number: GB-JNJFOC-20040601642

PATIENT
  Sex: Male
  Weight: 70 kg

DRUGS (10)
  1. BLINDED; ABCIXIMA [Suspect]
     Route: 042
  2. BLINDED; ABCIXIMA [Suspect]
     Indication: ACUTE MYOCARDIAL INFARCTION
     Route: 042
  3. RETEPLASE [Suspect]
     Indication: ACUTE MYOCARDIAL INFARCTION
     Route: 042
  4. PLACEBO [Suspect]
     Indication: ACUTE MYOCARDIAL INFARCTION
     Route: 042
  5. PARVOLEX [Concomitant]
  6. ENOXAPARIN SODIUM [Concomitant]
     Route: 058
  7. COMBIVENT [Concomitant]
     Route: 055
  8. COMBIVENT [Concomitant]
     Route: 055
  9. PREDNISOLONE [Concomitant]
  10. FUROSEMIDE [Concomitant]
     Route: 042

REACTIONS (7)
  - CORONARY ARTERY ATHEROSCLEROSIS [None]
  - CORONARY ARTERY OCCLUSION [None]
  - CYANOSIS [None]
  - DRUG INTERACTION [None]
  - MYOCARDIAL INFARCTION [None]
  - RESPIRATORY ARREST [None]
  - SINUS TACHYCARDIA [None]
